FAERS Safety Report 4557754-3 (Version None)
Quarter: 2005Q1

REPORT INFORMATION
  Report Type: 
  Country: None (occurrence: None)
  Receive Date: 20050103
  Receipt Date: 20040806
  Transmission Date: 20050727
  Serious: Yes (Other)
  Sender: FDA-Public Use
  Company Number: 2004UW16792

PATIENT
  Age: 56 Year
  Sex: Female
  Weight: 103.4201 kg

DRUGS (10)
  1. CRESTOR [Suspect]
     Indication: BLOOD CHOLESTEROL INCREASED
  2. ZETIA [Concomitant]
  3. LESCOL [Concomitant]
  4. TOPROL-XL [Concomitant]
  5. PREVACID [Concomitant]
  6. ZYRTEC [Concomitant]
  7. PROTONIX [Concomitant]
  8. NORVASC [Concomitant]
  9. PLAVIX [Concomitant]
  10. LOPRESSOR [Concomitant]

REACTIONS (3)
  - ARTHRALGIA [None]
  - MYALGIA [None]
  - SKIN DISCOMFORT [None]
